FAERS Safety Report 6153397-9 (Version None)
Quarter: 2009Q2

REPORT INFORMATION
  Report Type: 
  Country: None (occurrence: None)
  Receive Date: 20090413
  Receipt Date: 20090407
  Transmission Date: 20091009
  Serious: Yes (Death, Other)
  Sender: FDA-Public Use
  Company Number: US-GENENTECH-280318

PATIENT
  Sex: Male
  Weight: 78.005 kg

DRUGS (2)
  1. AVASTIN [Suspect]
     Indication: COLON CANCER METASTATIC
     Dosage: 5 MG/M2, Q2W
     Route: 042
     Dates: start: 20081222, end: 20090309
  2. OXALIPLATIN [Concomitant]
     Indication: DRUG USE FOR UNKNOWN INDICATION
     Dosage: 85 MG/M2, UNK
     Dates: start: 20090309

REACTIONS (2)
  - CEREBROVASCULAR ACCIDENT [None]
  - LEUKOENCEPHALOPATHY [None]
